FAERS Safety Report 7938494-7 (Version None)
Quarter: 2011Q4

REPORT INFORMATION
  Report Type: 
  Country: None (occurrence: None)
  Receive Date: 20111123
  Receipt Date: 20100113
  Transmission Date: 20120403
  Serious: Yes (Other)
  Sender: FDA-Public Use
  Company Number: PHHY2010TW17375

PATIENT
  Sex: Female

DRUGS (1)
  1. GLEEVEC [Suspect]
     Indication: GASTROINTESTINAL STROMAL TUMOUR
     Dosage: 400 UNK, 4 PILLS PER DAY
     Route: 048
     Dates: start: 20091020

REACTIONS (8)
  - BONE PAIN [None]
  - NERVE COMPRESSION [None]
  - PAIN IN EXTREMITY [None]
  - INSOMNIA [None]
  - LIPOMA OF BREAST [None]
  - TUMOUR PAIN [None]
  - EYE OEDEMA [None]
  - HAIR COLOUR CHANGES [None]
